FAERS Safety Report 10670862 (Version 2)
Quarter: 2015Q1

REPORT INFORMATION
  Report Type: Spontaneous
  Country: US (occurrence: US)
  Receive Date: 20141223
  Receipt Date: 20150219
  Transmission Date: 20150720
  Serious: No
  Sender: FDA-Public Use
  Company Number: US-PFIZER INC-2014351177

PATIENT
  Age: 24 Year
  Sex: Female

DRUGS (1)
  1. DEPO-PROVERA [Suspect]
     Active Substance: MEDROXYPROGESTERONE ACETATE
     Indication: CONTRACEPTION
     Dosage: UNK, EVERY 3 MONTHS
     Route: 030
     Dates: start: 20141106

REACTIONS (4)
  - Menorrhagia [Recovering/Resolving]
  - Abdominal distension [Unknown]
  - Product quality issue [Unknown]
  - Breast tenderness [Unknown]

NARRATIVE: CASE EVENT DATE: 201410
